FAERS Safety Report 7262250-9 (Version None)
Quarter: 2011Q1

REPORT INFORMATION
  Report Type: 
  Country: None (occurrence: None)
  Receive Date: 20110130
  Receipt Date: 20101228
  Transmission Date: 20110831
  Serious: Yes (Hospitalization)
  Sender: FDA-Public Use
  Company Number: US-ABBOTT-10P-163-0687698-00

PATIENT
  Age: 44 Year
  Sex: Female

DRUGS (3)
  1. UNKNOWN MEDICATION FROM PULMONOLOGIST [Concomitant]
     Indication: BRONCHIAL DISORDER
  2. HUMIRA [Suspect]
     Indication: PSORIATIC ARTHROPATHY
     Dates: start: 20100825, end: 20101020
  3. SINGULAIR [Concomitant]
     Indication: PRODUCT USED FOR UNKNOWN INDICATION
     Route: 048

REACTIONS (1)
  - PNEUMONIA [None]
